FAERS Safety Report 5792715-8 (Version None)
Quarter: 2008Q2

REPORT INFORMATION
  Report Type: 
  Country: None (occurrence: None)
  Receive Date: 20080624
  Receipt Date: 20080609
  Transmission Date: 20081010
  Serious: Yes (Death, Hospitalization, Disabling)
  Sender: FDA-Public Use
  Company Number: WAES 0801USA00427

PATIENT
  Age: 64 Year
  Sex: Male
  Weight: 119.7496 kg

DRUGS (20)
  1. CAP VORINOSTAT UNK [Suspect]
     Indication: ACUTE MYELOID LEUKAEMIA
     Dosage: 400 MG/DAILY/PO
     Route: 048
     Dates: start: 20071218, end: 20071230
  2. INJ DECITABINE UNK [Suspect]
     Indication: ACUTE MYELOID LEUKAEMIA
     Dosage: 20 MG/M[2]/DAILY/IV
     Route: 042
     Dates: start: 20071218, end: 20071222
  3. DIFLUCAN [Concomitant]
  4. EUCERIN CREME [Concomitant]
  5. EXJADE [Concomitant]
  6. HYDREA [Concomitant]
  7. HYDREA [Concomitant]
  8. IMODIUM [Concomitant]
  9. K-DUR [Concomitant]
  10. LASIX [Concomitant]
  11. LEVAQUIN [Concomitant]
  12. PREVACID [Concomitant]
  13. TYLENOL [Concomitant]
  14. VALTREX [Concomitant]
  15. ALLOPURINOL [Concomitant]
  16. BETAXOLOL HYDROCHLORIDE [Concomitant]
  17. CHLORINE [Concomitant]
  18. POTASSIUM CHLORIDE [Concomitant]
  19. MULTI-VITAMINS [Concomitant]
  20. MULTI-VITAMINS [Concomitant]

REACTIONS (10)
  - ACUTE MYELOID LEUKAEMIA [None]
  - BLOOD MAGNESIUM INCREASED [None]
  - BLOOD PHOSPHORUS DECREASED [None]
  - DISEASE PROGRESSION [None]
  - HAEMATEMESIS [None]
  - HAEMOGLOBIN DECREASED [None]
  - HYPOKALAEMIA [None]
  - NAUSEA [None]
  - THROMBOCYTOPENIA [None]
  - VOMITING [None]
